FAERS Safety Report 8827697 (Version 1)
Quarter: 2012Q4

REPORT INFORMATION
  Report Type: 
  Country: JP (occurrence: JP)
  Receive Date: 20121005
  Receipt Date: 20121005
  Transmission Date: 20130627
  Serious: Yes (Other)
  Sender: FDA-Public Use
  Company Number: PHHY2012JP087369

PATIENT
  Age: 59 Year
  Sex: Male

DRUGS (1)
  1. FAMCICLOVIR [Suspect]
     Dosage: 1000 mg,
     Route: 048
     Dates: start: 20120913, end: 20120914

REACTIONS (1)
  - Loss of consciousness [Recovered/Resolved]
